FAERS Safety Report 18999060 (Version 1)
Quarter: 2021Q1

REPORT INFORMATION
  Report Type: Spontaneous
  Country: DE (occurrence: DE)
  Receive Date: 20210311
  Receipt Date: 20210311
  Transmission Date: 20210420
  Serious: Yes (Death, Life-Threatening, Hospitalization)
  Sender: FDA-Public Use
  Company Number: DE-TEVA-2021-DE-1887309

PATIENT
  Age: 84 Year
  Sex: Female

DRUGS (13)
  1. LORAZEPAM. [Concomitant]
     Active Substance: LORAZEPAM
     Dosage: 1.0 MG, REQUIREMENT
  2. TILIDINE/NALOXONE [Concomitant]
     Active Substance: NALOXONE HYDROCHLORIDE\TILIDINE HYDROCHLORIDE
     Dosage: 4 DOSAGE FORMS DAILY; 4 | 50 MG, 1?1?1?1, TABLETS
  3. PANTOPRAZOL [Concomitant]
     Active Substance: PANTOPRAZOLE SODIUM
     Dosage: 40 MILLIGRAM DAILY; 1?0?0?0
  4. DULOXETIN [Suspect]
     Active Substance: DULOXETINE
     Dosage: 30 MILLIGRAM DAILY; 1?0?0?0
  5. METOPROLOL. [Concomitant]
     Active Substance: METOPROLOL
     Dosage: .5 DOSAGE FORMS DAILY; 50 MG, 0.5?0?0?0
  6. LETROZOL [Concomitant]
     Active Substance: LETROZOLE
     Dosage: 2.5 MILLIGRAM DAILY; 0?0?0?1
  7. TAFLOTAN [Concomitant]
     Active Substance: TAFLUPROST
     Dosage: 1 DOSAGE FORMS DAILY; 0?0?1?0, DROPS
     Route: 047
  8. DOLOPOSTERINE N ZAPFCHEN [Concomitant]
     Dosage: 2 DOSAGE FORMS DAILY; 1?0?1?0, SUPPOSITORIES
     Route: 054
  9. GAVISCON [Concomitant]
     Active Substance: ALUMINUM HYDROXIDE\MAGNESIUM CARBONATE
     Dosage: NEED, TABLETS
  10. APIXABAN [Suspect]
     Active Substance: APIXABAN
     Dosage: ENDED ON 17072020
     Dates: end: 20200717
  11. METAMIZOL [Concomitant]
     Active Substance: METAMIZOLE SODIUM
     Dosage: 160 DOSAGE FORMS DAILY; 40?40?40?40, DROPS
  12. PROMETHAZINE [Concomitant]
     Active Substance: PROMETHAZINE HYDROCHLORIDE
     Dosage: 5?0?10?0, DROPS
  13. COTRIM [Concomitant]
     Active Substance: SULFAMETHOXAZOLE\TRIMETHOPRIM
     Dosage: 4 DOSAGE FORMS DAILY; 2?0?2?0

REACTIONS (5)
  - General physical health deterioration [Unknown]
  - Haematemesis [Unknown]
  - Haematochezia [Unknown]
  - Anaemia [Unknown]
  - Haematuria [Unknown]
